FAERS Safety Report 15532202 (Version 6)
Quarter: 2019Q2

REPORT INFORMATION
  Report Type: Spontaneous
  Country: CA (occurrence: CA)
  Receive Date: 20181019
  Receipt Date: 20190507
  Transmission Date: 20190711
  Serious: Yes (Other)
  Sender: FDA-Public Use
  Company Number: CA-CELLTRION INC.-2018CA017888

PATIENT

DRUGS (11)
  1. INFLECTRA [Suspect]
     Active Substance: INFLIXIMAB-DYYB
     Dosage: 5 MG/KG EVERY 8 WEEKS THEREAFTER
     Route: 042
     Dates: start: 20181130
  2. INFLECTRA [Suspect]
     Active Substance: INFLIXIMAB-DYYB
     Dosage: 5 MG/KG EVERY 8 WEEKS THEREAFTER
     Route: 042
     Dates: start: 20190322
  3. AZATHIOPRINE. [Concomitant]
     Active Substance: AZATHIOPRINE
     Dosage: 50 MG, UNK
     Dates: start: 20180323
  4. INFLECTRA [Suspect]
     Active Substance: INFLIXIMAB-DYYB
     Dosage: 5 MG/KG EVERY 8 WEEKS THEREAFTER
     Route: 042
     Dates: start: 20180420
  5. INFLECTRA [Suspect]
     Active Substance: INFLIXIMAB-DYYB
     Dosage: 5 MG/KG EVERY 8 WEEKS THEREAFTER
     Route: 042
     Dates: start: 20180615
  6. INFLECTRA [Suspect]
     Active Substance: INFLIXIMAB-DYYB
     Dosage: 5 MG/KG EVERY 8 WEEKS THEREAFTER
     Route: 042
     Dates: start: 20180810
  7. INFLECTRA [Suspect]
     Active Substance: INFLIXIMAB-DYYB
     Indication: COLITIS ULCERATIVE
     Dosage: 10 MG/KG AT WEEK 0, 2 AND 6
     Route: 042
     Dates: start: 20180112, end: 20180226
  8. INFLECTRA [Suspect]
     Active Substance: INFLIXIMAB-DYYB
     Dosage: 10 MG/KG AT WEEK 0, 2 AND 6
     Route: 042
     Dates: start: 20180226
  9. PREDNISONE. [Concomitant]
     Active Substance: PREDNISONE
     Dosage: UNK
     Dates: start: 20180112
  10. INFLECTRA [Suspect]
     Active Substance: INFLIXIMAB-DYYB
     Dosage: 5 MG/KG EVERY 8 WEEKS THEREAFTER
     Route: 042
     Dates: start: 20181005
  11. INFLECTRA [Suspect]
     Active Substance: INFLIXIMAB-DYYB
     Dosage: 5 MG/KG EVERY 8 WEEKS THEREAFTER
     Route: 042
     Dates: start: 20190125

REACTIONS (15)
  - Abdominal pain upper [Unknown]
  - Tongue ulceration [Unknown]
  - Heart rate irregular [Unknown]
  - Stress [Unknown]
  - Drug ineffective [Unknown]
  - Arthralgia [Unknown]
  - Urinary tract infection [Recovered/Resolved]
  - Product use issue [Unknown]
  - Condition aggravated [Recovered/Resolved]
  - Amenorrhoea [Unknown]
  - Fatigue [Not Recovered/Not Resolved]
  - Pain [Unknown]
  - Rash pruritic [Unknown]
  - Weight increased [Unknown]
  - Abdominal pain [Unknown]

NARRATIVE: CASE EVENT DATE: 20180124
